FAERS Safety Report 19034707 (Version 1)
Quarter: 2021Q1

REPORT INFORMATION
  Report Type: Spontaneous
  Country: CN (occurrence: CN)
  Receive Date: 20210319
  Receipt Date: 20210319
  Transmission Date: 20210420
  Serious: Yes (Other)
  Sender: FDA-Public Use
  Company Number: CN-BAXTER-2021BAX005052

PATIENT
  Age: 49 Year
  Sex: Male
  Weight: 70 kg

DRUGS (1)
  1. ENDOXAN [Suspect]
     Active Substance: CYCLOPHOSPHAMIDE
     Indication: SYSTEMIC LUPUS ERYTHEMATOSUS
     Route: 041
     Dates: start: 20210207, end: 20210207

REACTIONS (9)
  - Chest pain [Unknown]
  - Chills [Unknown]
  - Palpitations [Recovering/Resolving]
  - Pyrexia [Unknown]
  - Dyspnoea [Unknown]
  - Blood pressure increased [Recovering/Resolving]
  - Temperature intolerance [Unknown]
  - Hyperhidrosis [Unknown]
  - Drug hypersensitivity [Unknown]

NARRATIVE: CASE EVENT DATE: 20210207
